FAERS Safety Report 13771445 (Version 1)
Quarter: 2017Q3

REPORT INFORMATION
  Report Type: Spontaneous
  Country: US (occurrence: US)
  Receive Date: 20170720
  Receipt Date: 20170720
  Transmission Date: 20171127
  Serious: No
  Sender: FDA-Public Use
  Company Number: US-B.I. PHARMACEUTICALS,INC./RIDGEFIELD-2017-BI-039714

PATIENT
  Age: 69 Year
  Sex: Male

DRUGS (8)
  1. AMLODIPINE [Concomitant]
     Active Substance: AMLODIPINE BESYLATE
     Indication: HYPERTENSION
     Dosage: ONE TABLET DAILY;  FORM STRENGTH: 20MG; FORMULATION: TABLET
     Route: 048
  2. TRAMADOL. [Concomitant]
     Active Substance: TRAMADOL
     Indication: MYELOPATHY
     Dosage: ONE CAPLET EVERY 8 HOURS AS NEEDED FOR PAIN;  FORM STRENGTH: 50MG; FORMULATION: CAPLET
     Route: 048
  3. TAMSULOSIN [Concomitant]
     Active Substance: TAMSULOSIN
     Indication: PROSTATOMEGALY
     Dosage: ONE CAPSULE DAILY;  FORM STRENGTH: 0.4MG; FORMULATION: CAPSULE
     Route: 048
  4. STIOLTO RESPIMAT [Suspect]
     Active Substance: OLODATEROL HYDROCHLORIDE\TIOTROPIUM BROMIDE MONOHYDRATE
     Indication: DYSPNOEA
     Route: 055
     Dates: start: 20170613
  5. METOPROLOL. [Concomitant]
     Active Substance: METOPROLOL
     Indication: HYPERTENSION
     Dosage: ONE TABLET DAILY;  FORM STRENGTH: 100MG; FORMULATION: TABLET
     Route: 048
  6. BENICAR [Concomitant]
     Active Substance: OLMESARTAN MEDOXOMIL
     Indication: HYPERTENSION
     Dosage: ONE TABLET DAILY;  FORM STRENGTH: 40/25MG; FORMULATION: TABLET
     Route: 048
  7. CELEXA [Concomitant]
     Active Substance: CITALOPRAM HYDROBROMIDE
     Indication: BRAIN INJURY
     Dosage: ONE CAPLET DAILY;  FORM STRENGTH: 40MG; FORMULATION: CAPLET
     Route: 048
  8. WELLBUTRIN [Concomitant]
     Active Substance: BUPROPION HYDROCHLORIDE
     Indication: BRAIN INJURY
     Dosage: ONE CAPLET DAILY;  FORM STRENGTH: 300MG; FORMULATION: CAPLET
     Route: 048

REACTIONS (3)
  - Dysphonia [Unknown]
  - Drug screen false positive [Unknown]
  - Memory impairment [Unknown]

NARRATIVE: CASE EVENT DATE: 20170613
